FAERS Safety Report 24710272 (Version 6)
Quarter: 2025Q2

REPORT INFORMATION
  Report Type: Report from Study
  Country: US (occurrence: US)
  Receive Date: 20241209
  Receipt Date: 20250526
  Transmission Date: 20250717
  Serious: Yes (Hospitalization, Other)
  Sender: TAKEDA
  Company Number: US-TAKEDA-2024TUS071481

PATIENT
  Age: 66 Year
  Sex: Female
  Weight: 98 kg

DRUGS (31)
  1. HUMAN IMMUNOGLOBULIN G [Suspect]
     Active Substance: HUMAN IMMUNOGLOBULIN G
     Indication: Immunodeficiency common variable
     Dosage: UNK UNK, Q4WEEKS
     Dates: start: 20240530
  2. HUMAN IMMUNOGLOBULIN G [Suspect]
     Active Substance: HUMAN IMMUNOGLOBULIN G
     Dosage: 400 MILLIGRAM/KILOGRAM, Q4WEEKS
  3. EPINEPHRINE [Concomitant]
     Active Substance: EPINEPHRINE
  4. ACETAMINOPHEN [Concomitant]
     Active Substance: ACETAMINOPHEN
  5. LIPITOR [Concomitant]
     Active Substance: ATORVASTATIN CALCIUM
  6. COLACE [Concomitant]
     Active Substance: DOCUSATE SODIUM
  7. XANAX [Concomitant]
     Active Substance: ALPRAZOLAM
  8. NYSTATIN [Concomitant]
     Active Substance: NYSTATIN
  9. SINGULAIR [Concomitant]
     Active Substance: MONTELUKAST SODIUM
  10. ALLEGRA ALLERGY [Concomitant]
     Active Substance: FEXOFENADINE HYDROCHLORIDE
  11. TYLENOL EXTRA STRENGTH [Concomitant]
     Active Substance: ACETAMINOPHEN
  12. SODIUM CHLORIDE [Concomitant]
     Active Substance: SODIUM CHLORIDE
  13. ALBUTEROL SULFATE [Concomitant]
     Active Substance: ALBUTEROL SULFATE
  14. ATENOLOL [Concomitant]
     Active Substance: ATENOLOL
  15. TRELEGY ELLIPTA [Concomitant]
     Active Substance: FLUTICASONE FUROATE\UMECLIDINIUM BROMIDE\VILANTEROL TRIFENATATE
  16. LANTUS SOLOSTAR [Concomitant]
     Active Substance: INSULIN GLARGINE
  17. ELIQUIS [Concomitant]
     Active Substance: APIXABAN
  18. LIDOCAINE [Concomitant]
     Active Substance: LIDOCAINE
  19. FLUTICASONE PROPIONATE [Concomitant]
     Active Substance: FLUTICASONE PROPIONATE
  20. NITROGLYCERIN [Concomitant]
     Active Substance: NITROGLYCERIN
  21. METFORMIN HYDROCHLORIDE [Concomitant]
     Active Substance: METFORMIN HYDROCHLORIDE
  22. DILTIAZEM HYDROCHLORIDE [Concomitant]
     Active Substance: DILTIAZEM HYDROCHLORIDE
  23. SPIRONOLACTONE [Concomitant]
     Active Substance: SPIRONOLACTONE
  24. MUPIROCIN [Concomitant]
     Active Substance: MUPIROCIN
  25. DIPHENHYDRAMINE HYDROCHLORIDE [Concomitant]
     Active Substance: DIPHENHYDRAMINE HYDROCHLORIDE
  26. FUROSEMIDE [Concomitant]
     Active Substance: FUROSEMIDE
  27. OMEPRAZOLE [Concomitant]
     Active Substance: OMEPRAZOLE
  28. NOVOLOG [Concomitant]
     Active Substance: INSULIN ASPART
  29. ONDANSETRON HYDROCHLORIDE [Concomitant]
     Active Substance: ONDANSETRON HYDROCHLORIDE
  30. ISOSORBIDE MONONITRATE [Concomitant]
     Active Substance: ISOSORBIDE MONONITRATE
  31. MECLIZINE HYDROCHLORIDE [Concomitant]
     Active Substance: MECLIZINE HYDROCHLORIDE

REACTIONS (11)
  - Illness [Unknown]
  - Atrial fibrillation [Unknown]
  - Arrhythmia [Unknown]
  - Urinary tract infection [Not Recovered/Not Resolved]
  - COVID-19 [Unknown]
  - Respiratory syncytial virus infection [Unknown]
  - Tooth infection [Unknown]
  - Localised infection [Recovered/Resolved]
  - Post-traumatic stress disorder [Unknown]
  - Poor quality product administered [Unknown]
  - Product dose omission issue [Unknown]

NARRATIVE: CASE EVENT DATE: 20240705
